FAERS Safety Report 10895752 (Version 1)
Quarter: 2015Q1

REPORT INFORMATION
  Report Type: Spontaneous
  Country: US (occurrence: US)
  Receive Date: 20150307
  Receipt Date: 20150307
  Transmission Date: 20150721
  Serious: No
  Sender: FDA-Public Use
  Company Number: US-ASTRAZENECA-2015SE19061

PATIENT
  Sex: Male

DRUGS (2)
  1. BYETTA [Suspect]
     Active Substance: EXENATIDE
     Dosage: PRESCRIBED 10 MCG 4 TIMES INSTEAD OF 1
     Route: 058
  2. BYETTA [Suspect]
     Active Substance: EXENATIDE
     Dosage: 10UG, UNKNOWN FREQUENCY
     Route: 058

REACTIONS (3)
  - Blood glucose decreased [Unknown]
  - Intentional product misuse [Unknown]
  - Dizziness [Unknown]

NARRATIVE: CASE EVENT DATE: 20150224
